FAERS Safety Report 7518113-4 (Version None)
Quarter: 2011Q2

REPORT INFORMATION
  Report Type: 
  Country: None (occurrence: None)
  Receive Date: 20110531
  Receipt Date: 20110531
  Transmission Date: 20111010
  Serious: Yes (Other)
  Sender: FDA-Public Use
  Company Number: None

PATIENT
  Sex: Male
  Weight: 87.7 kg

DRUGS (2)
  1. FLONASE [Suspect]
     Indication: RHINITIS ALLERGIC
     Dosage: 1 SPRAY EACH NOSTRIL ONCE DAILY NASAL
     Route: 045
     Dates: start: 20110506
  2. FLONASE [Suspect]
     Indication: NASAL POLYPS
     Dosage: 1 SPRAY EACH NOSTRIL ONCE DAILY NASAL
     Route: 045
     Dates: start: 20110506

REACTIONS (1)
  - EPISTAXIS [None]
